FAERS Safety Report 9639323 (Version 4)
Quarter: 2013Q4

REPORT INFORMATION
  Report Type: Report from Study
  Country: IT (occurrence: IT)
  Receive Date: 20131022
  Receipt Date: 20131209
  Transmission Date: 20140711
  Serious: Yes (Hospitalization, Other)
  Sender: FDA-Public Use
  Company Number: IT-TEVA-439712USA

PATIENT
  Age: 81 Year
  Sex: Male
  Weight: 82 kg

DRUGS (11)
  1. BENDAMUSTINE [Suspect]
     Indication: PRODUCT USED FOR UNKNOWN INDICATION
     Route: 042
     Dates: start: 20130801, end: 20131002
  2. DESAMETASONE FOSF [Suspect]
     Indication: PRODUCT USED FOR UNKNOWN INDICATION
     Dosage: UNKNOWN/D (DAYS 1, 8,15 AND 22)
     Route: 048
     Dates: start: 20130801
  3. LENALIDOMIDE [Suspect]
     Indication: PRODUCT USED FOR UNKNOWN INDICATION
     Route: 048
     Dates: start: 20130801
  4. LENALIDOMIDE [Suspect]
     Route: 048
     Dates: start: 20130829
  5. LENALIDOMIDE [Suspect]
     Route: 048
     Dates: start: 20130924
  6. OMNIC [Concomitant]
     Route: 048
  7. DECADRON [Concomitant]
  8. REVLIMID [Concomitant]
  9. LANSOPRAZOLO [Concomitant]
  10. CARDIOASPIRIN [Concomitant]
  11. LASIX [Concomitant]
     Dosage: 25 MILLIGRAM DAILY;
     Route: 048

REACTIONS (4)
  - Syncope [Recovered/Resolved]
  - Loss of consciousness [Recovered/Resolved]
  - Pneumonia [Recovered/Resolved]
  - Malaise [Recovered/Resolved]
